FAERS Safety Report 7830459-9 (Version None)
Quarter: 2011Q4

REPORT INFORMATION
  Report Type: 
  Country: None (occurrence: None)
  Receive Date: 20111021
  Receipt Date: 20111019
  Transmission Date: 20120403
  Serious: Yes (Other)
  Sender: FDA-Public Use
  Company Number: HU-ROXANE LABORATORIES, INC.-2011-RO-01500RO

PATIENT
  Age: 23 Year
  Sex: Female

DRUGS (2)
  1. LEVETIRACETAM [Suspect]
     Indication: EPILEPSY
  2. LAMOTRIGINE [Suspect]
     Indication: EPILEPSY

REACTIONS (1)
  - PARTIAL SEIZURES [None]
